FAERS Safety Report 5914017-9 (Version None)
Quarter: 2008Q4

REPORT INFORMATION
  Report Type: 
  Country: None (occurrence: None)
  Receive Date: 20081009
  Receipt Date: 20081007
  Transmission Date: 20090506
  Serious: Yes (Hospitalization)
  Sender: FDA-Public Use
  Company Number: JP-BRISTOL-MYERS SQUIBB COMPANY-14120570

PATIENT
  Age: 72 Year
  Sex: Female

DRUGS (7)
  1. TAXOL [Suspect]
     Indication: LUNG NEOPLASM MALIGNANT
     Route: 041
     Dates: start: 20080310
  2. PARAPLATIN [Suspect]
     Indication: LUNG NEOPLASM MALIGNANT
     Route: 041
     Dates: start: 20080310, end: 20080310
  3. DOCETAXEL [Suspect]
     Indication: NON-SMALL CELL LUNG CANCER
  4. TS-1 [Suspect]
     Indication: NON-SMALL CELL LUNG CANCER
  5. RESTAMIN [Concomitant]
     Route: 048
     Dates: start: 20080310
  6. OLMETEC [Concomitant]
     Route: 048
     Dates: start: 20080313, end: 20080321
  7. MOBIC [Concomitant]
     Route: 048
     Dates: start: 20080313, end: 20080930

REACTIONS (1)
  - RHABDOMYOLYSIS [None]
